FAERS Safety Report 4773878-X (Version None)
Quarter: 2005Q3

REPORT INFORMATION
  Report Type: 
  Country: None (occurrence: None)
  Receive Date: 20050919
  Receipt Date: 20050907
  Transmission Date: 20060218
  Serious: Yes (Hospitalization)
  Sender: FDA-Public Use
  Company Number: HQWYE335509SEP05

PATIENT
  Age: 71 Year
  Sex: Female

DRUGS (3)
  1. RAPAMUNE [Suspect]
     Indication: IMMUNOSUPPRESSANT DRUG THERAPY
     Dates: start: 20020601
  2. AZATHIOPRINE [Concomitant]
  3. PREDNISONE [Concomitant]

REACTIONS (10)
  - ANTIBODY TEST POSITIVE [None]
  - BLOOD CREATINE INCREASED [None]
  - CONDITION AGGRAVATED [None]
  - DISSEMINATED TUBERCULOSIS [None]
  - DRUG INEFFECTIVE [None]
  - JOINT DISLOCATION [None]
  - PYREXIA [None]
  - RHEUMATOID ARTHRITIS [None]
  - RHEUMATOID FACTOR INCREASED [None]
  - X-RAY LIMB ABNORMAL [None]
